FAERS Safety Report 25145698 (Version 1)
Quarter: 2025Q2

REPORT INFORMATION
  Report Type: Spontaneous
  Country: BR (occurrence: BR)
  Receive Date: 20250401
  Receipt Date: 20250401
  Transmission Date: 20250717
  Serious: Yes (Hospitalization, Other)
  Sender: BAYER
  Company Number: BR-BAYER-2025A025574

PATIENT
  Age: 84 Year
  Sex: Male
  Weight: 79 kg

DRUGS (1)
  1. XOFIGO [Suspect]
     Active Substance: RADIUM RA-223 DICHLORIDE

REACTIONS (4)
  - Pain [None]
  - Metastases to bone [None]
  - Asthenia [None]
  - Adverse event [None]

NARRATIVE: CASE EVENT DATE: 20250201
